FAERS Safety Report 24524392 (Version 2)
Quarter: 2024Q4

REPORT INFORMATION
  Report Type: Report from Study
  Country: US (occurrence: US)
  Receive Date: 20241018
  Receipt Date: 20241030
  Transmission Date: 20250115
  Serious: Yes (Hospitalization, Other)
  Sender: ABBVIE
  Company Number: US-ABBVIE-5602114

PATIENT
  Sex: Female

DRUGS (2)
  1. CREON [Suspect]
     Active Substance: PANCRELIPASE AMYLASE\PANCRELIPASE LIPASE\PANCRELIPASE PROTEASE
     Indication: Product used for unknown indication
     Route: 048
     Dates: start: 20191023, end: 2023
  2. CREON [Suspect]
     Active Substance: PANCRELIPASE AMYLASE\PANCRELIPASE LIPASE\PANCRELIPASE PROTEASE
     Indication: Product used for unknown indication
     Route: 048
     Dates: end: 202403

REACTIONS (33)
  - Hiatus hernia [Not Recovered/Not Resolved]
  - Asthenia [Unknown]
  - Malnutrition [Unknown]
  - Multiple fractures [Unknown]
  - Alopecia [Unknown]
  - Poor quality sleep [Unknown]
  - Memory impairment [Unknown]
  - Leukocytosis [Not Recovered/Not Resolved]
  - Ligament rupture [Unknown]
  - Decreased appetite [Unknown]
  - Tendon rupture [Unknown]
  - Condition aggravated [Unknown]
  - Feeding disorder [Unknown]
  - Fatigue [Unknown]
  - Wrist fracture [Unknown]
  - Bradyphrenia [Unknown]
  - Hypertension [Unknown]
  - Gait disturbance [Recovering/Resolving]
  - Product lot number issue [Unknown]
  - Disorientation [Unknown]
  - Feeling abnormal [Unknown]
  - Vomiting [Unknown]
  - Abdominal pain [Unknown]
  - Proctalgia [Unknown]
  - Fall [Unknown]
  - Limb injury [Unknown]
  - Malabsorption [Unknown]
  - Haematemesis [Unknown]
  - Infection [Unknown]
  - Dizziness [Unknown]
  - Fall [Unknown]
  - Illness [Unknown]
  - Muscular weakness [Unknown]

NARRATIVE: CASE EVENT DATE: 20190101
